FAERS Safety Report 8874218 (Version 1)
Quarter: 2012Q4

REPORT INFORMATION
  Report Type: 
  Country: DE (occurrence: TR)
  Receive Date: 20121031
  Receipt Date: 20121031
  Transmission Date: 20130627
  Serious: Yes (Other)
  Sender: FDA-Public Use
  Company Number: TR-BRISTOL-MYERS SQUIBB COMPANY-17080334

PATIENT

DRUGS (1)
  1. ERBITUX [Suspect]

REACTIONS (1)
  - Blindness [Unknown]
